FAERS Safety Report 14243528 (Version 1)
Quarter: 2017Q4

REPORT INFORMATION
  Report Type: Spontaneous
  Country: US (occurrence: None)
  Receive Date: 20171130
  Receipt Date: 20171130
  Transmission Date: 20180321
  Serious: No
  Sender: FDA-Public Use
  Company Number: None

PATIENT
  Age: 58 Year
  Sex: Female

DRUGS (1)
  1. TREMFYA [Suspect]
     Active Substance: GUSELKUMAB
     Indication: PUSTULAR PSORIASIS
     Dosage: FREQUENCY - EVERY 4 WEEKS
     Route: 058
     Dates: start: 20171018, end: 20171110

REACTIONS (5)
  - Staphylococcal infection [None]
  - Stomatitis [None]
  - Vaginal infection [None]
  - Dysuria [None]
  - Herpes virus infection [None]

NARRATIVE: CASE EVENT DATE: 20171110
